FAERS Safety Report 4524611-8 (Version None)
Quarter: 2004Q4

REPORT INFORMATION
  Report Type: 
  Country: None (occurrence: None)
  Receive Date: 20041117
  Receipt Date: 20040618
  Transmission Date: 20050328
  Serious: Yes (Disabling, Other)
  Sender: FDA-Public Use
  Company Number: NSADSS2003001553

PATIENT
  Age: 74 Year
  Sex: Male

DRUGS (6)
  1. LEVAQUIN [Suspect]
     Indication: COUGH
     Dosage: 500 MG, 1 IN 1 DAY, ORAL
     Route: 048
     Dates: start: 20020918, end: 20021017
  2. LEVAQUIN [Suspect]
     Indication: PYREXIA
     Dosage: 500 MG, 1 IN 1 DAY, ORAL
     Route: 048
     Dates: start: 20020918, end: 20021017
  3. LEVAQUIN [Suspect]
     Indication: SPUTUM DISCOLOURED
     Dosage: 500 MG, 1 IN 1 DAY, ORAL
     Route: 048
     Dates: start: 20020918, end: 20021017
  4. DIAZEPAM [Concomitant]
  5. GUAIFENESIN (GUAIFENESIN) [Concomitant]
  6. PREDNISONE [Concomitant]

REACTIONS (4)
  - ARTHRALGIA [None]
  - MEDICATION ERROR [None]
  - TENDON RUPTURE [None]
  - TENDONITIS [None]
